FAERS Safety Report 6994682-8 (Version None)
Quarter: 2010Q3

REPORT INFORMATION
  Report Type: 
  Country: None (occurrence: None)
  Receive Date: 20100915
  Receipt Date: 20100831
  Transmission Date: 20110219
  Serious: Yes (Hospitalization)
  Sender: FDA-Public Use
  Company Number: 2010P1001213

PATIENT
  Age: 45 Year
  Sex: Male
  Weight: 63.5036 kg

DRUGS (3)
  1. FENTANYL [Suspect]
     Indication: BONE DISORDER
     Dosage: 75 MCG/HR;Q72H;TDER
     Route: 062
     Dates: start: 20100701, end: 20100818
  2. CLONAZEPAM [Concomitant]
  3. NERVE MEDICATION [Concomitant]

REACTIONS (8)
  - ABDOMINAL ADHESIONS [None]
  - ABDOMINAL PAIN UPPER [None]
  - INTESTINAL STENOSIS [None]
  - OCULAR HYPERAEMIA [None]
  - PAIN [None]
  - PRODUCT ADHESION ISSUE [None]
  - PRODUCT SUBSTITUTION ISSUE [None]
  - SCREAMING [None]
